FAERS Safety Report 5844140-9 (Version None)
Quarter: 2008Q3

REPORT INFORMATION
  Report Type: 
  Country: None (occurrence: None)
  Receive Date: 20080813
  Receipt Date: 20080804
  Transmission Date: 20090109
  Serious: Yes (Other)
  Sender: FDA-Public Use
  Company Number: FR-ABBOTT-08P-056-0458060-00

PATIENT
  Sex: Female

DRUGS (8)
  1. RITONAVIR SOFT GELATIN CAPSULES [Suspect]
     Indication: HIV INFECTION
     Route: 048
     Dates: start: 20080130, end: 20080527
  2. APTIVUS [Suspect]
     Indication: HIV INFECTION
     Route: 048
     Dates: start: 20080130, end: 20080527
  3. RALTEGRAVIR [Suspect]
     Indication: HIV INFECTION
     Route: 048
     Dates: start: 20080326, end: 20080527
  4. RALTEGRAVIR [Suspect]
  5. TRUVADA [Concomitant]
     Indication: HIV INFECTION
     Route: 048
     Dates: start: 20080130, end: 20080527
  6. ENFUVIRTIDE [Concomitant]
     Indication: HIV INFECTION
     Dates: start: 20080130, end: 20080526
  7. TRUVADA [Concomitant]
     Indication: DRUG USE FOR UNKNOWN INDICATION
  8. ETRAVIRINE [Concomitant]
     Indication: DRUG USE FOR UNKNOWN INDICATION

REACTIONS (5)
  - CHOLESTASIS [None]
  - CYTOLYTIC HEPATITIS [None]
  - FATIGUE [None]
  - INFLAMMATION [None]
  - SUBCUTANEOUS NODULE [None]
